FAERS Safety Report 19303476 (Version 1)
Quarter: 2021Q2

REPORT INFORMATION
  Report Type: Report from Study
  Country: US (occurrence: US)
  Receive Date: 20210525
  Receipt Date: 20210525
  Transmission Date: 20210717
  Serious: Yes (Other)
  Sender: FDA-Public Use
  Company Number: US-JNJFOC-20210531925

PATIENT
  Age: 37 Year
  Sex: Female

DRUGS (6)
  1. SPRAVATO [Suspect]
     Active Substance: ESKETAMINE
     Indication: DEPRESSION
     Dates: start: 20210315, end: 20210315
  2. FLUOXETINE [Concomitant]
     Active Substance: FLUOXETINE HYDROCHLORIDE
  3. CHLORPROMAZINE. [Concomitant]
     Active Substance: CHLORPROMAZINE
  4. METHYLPHENIDATE. [Concomitant]
     Active Substance: METHYLPHENIDATE
  5. SPRAVATO [Suspect]
     Active Substance: ESKETAMINE
     Dosage: TOTAL 9 DOSES
     Dates: start: 20210514
  6. SPRAVATO [Suspect]
     Active Substance: ESKETAMINE
     Dosage: TOTAL 9 DOSES
     Dates: start: 20210319

REACTIONS (2)
  - Vomiting [Recovered/Resolved]
  - Nausea [Recovered/Resolved]

NARRATIVE: CASE EVENT DATE: 20210514
